FAERS Safety Report 15237641 (Version 4)
Quarter: 2018Q4

REPORT INFORMATION
  Report Type: Spontaneous
  Country: JP (occurrence: JP)
  Receive Date: 20180803
  Receipt Date: 20181108
  Transmission Date: 20190204
  Serious: Yes (Hospitalization, Other)
  Sender: FDA-Public Use
  Company Number: JP-009507513-1807JPN003578J

PATIENT
  Age: 69 Year
  Sex: Female
  Weight: 53 kg

DRUGS (5)
  1. AMOXICILLIN. [Concomitant]
     Active Substance: AMOXICILLIN
     Indication: TOOTH EXTRACTION
     Dosage: 250 MG, TID
     Route: 048
     Dates: start: 20180626
  2. TRAMAZOLINE [Concomitant]
     Active Substance: TRAMAZOLINE
     Indication: SNORING
     Dosage: UNK, UNKNOWN
     Route: 045
     Dates: start: 20180606
  3. DESALEX TABLETS 5MG [Suspect]
     Active Substance: DESLORATADINE
     Indication: SNORING
     Dosage: 5 MG, QD
     Route: 048
     Dates: start: 20180606, end: 20180617
  4. SHIN^ISEIHAITO [Concomitant]
     Active Substance: HERBALS
     Indication: SNORING
     Dosage: 2.5 G, TID
     Route: 048
     Dates: start: 20180606, end: 20180617
  5. LOXONIN [Concomitant]
     Active Substance: LOXOPROFEN SODIUM
     Indication: TOOTHACHE
     Route: 048
     Dates: start: 20180626

REACTIONS (2)
  - Product use in unapproved indication [Unknown]
  - Interstitial lung disease [Recovering/Resolving]

NARRATIVE: CASE EVENT DATE: 20180717
